FAERS Safety Report 4802739-2 (Version None)
Quarter: 2005Q4

REPORT INFORMATION
  Report Type: 
  Country: None (occurrence: None)
  Receive Date: 20051017
  Receipt Date: 20051017
  Transmission Date: 20060501
  Serious: Yes (Hospitalization)
  Sender: FDA-Public Use
  Company Number: None

PATIENT
  Age: 58 Year
  Sex: Female
  Weight: 85.2762 kg

DRUGS (8)
  1. VELCADE [Suspect]
     Indication: METASTATIC MALIGNANT MELANOMA
     Dosage: 2.7 MG   TWICE WEEKLY   IV
     Route: 042
     Dates: start: 20050712, end: 20051004
  2. TEMODAR [Suspect]
     Indication: METASTATIC MALIGNANT MELANOMA
     Dosage: 160 MG   DAILY X 6 WEEKS   PO
     Route: 048
     Dates: start: 20050719, end: 20050830
  3. PHENERGAN [Concomitant]
  4. PERCOCET [Concomitant]
  5. HYDROCHLOROTHIAZIDE [Concomitant]
  6. ATENOLOL [Concomitant]
  7. SPIROLACTONE [Concomitant]
  8. ZOCOR [Concomitant]

REACTIONS (8)
  - ANOREXIA [None]
  - CHILLS [None]
  - DIZZINESS [None]
  - FATIGUE [None]
  - NAUSEA [None]
  - ORAL INTAKE REDUCED [None]
  - PYREXIA [None]
  - RESPIRATORY RATE INCREASED [None]
